FAERS Safety Report 25346991 (Version 1)
Quarter: 2025Q2

REPORT INFORMATION
  Report Type: Spontaneous
  Country: GB (occurrence: GB)
  Receive Date: 20250522
  Receipt Date: 20250522
  Transmission Date: 20250716
  Serious: Yes (Other)
  Sender: GLAXOSMITHKLINE
  Company Number: None

PATIENT

DRUGS (1)
  1. DUAC [Suspect]
     Active Substance: BENZOYL PEROXIDE\CLINDAMYCIN PHOSPHATE
     Indication: Acne
     Route: 065
     Dates: start: 20241020, end: 20241025

REACTIONS (11)
  - Swelling face [Recovered/Resolved]
  - Dry skin [Recovering/Resolving]
  - Erythema [Recovering/Resolving]
  - Pruritus [Recovering/Resolving]
  - Burning sensation [Recovering/Resolving]
  - Purging [Recovering/Resolving]
  - Condition aggravated [Recovering/Resolving]
  - Eye swelling [Recovering/Resolving]
  - Skin irritation [Recovering/Resolving]
  - Discomfort [Unknown]
  - Emotional distress [Unknown]

NARRATIVE: CASE EVENT DATE: 20241001
